FAERS Safety Report 5677896-9 (Version None)
Quarter: 2008Q1

REPORT INFORMATION
  Report Type: 
  Country: None (occurrence: None)
  Receive Date: 20080319
  Receipt Date: 20080313
  Transmission Date: 20080703
  Serious: Yes (Death)
  Sender: FDA-Public Use
  Company Number: FABR-1000143

PATIENT
  Age: 57 Year

DRUGS (1)
  1. FABRAZYME [Suspect]
     Indication: FABRY'S DISEASE
     Dosage: 75 MG, Q2W, INTRAVENOUS
     Route: 042
     Dates: start: 20050318, end: 20080214

REACTIONS (1)
  - DEATH [None]
